FAERS Safety Report 7758994-2 (Version None)
Quarter: 2011Q3

REPORT INFORMATION
  Report Type: 
  Country: None (occurrence: None)
  Receive Date: 20110919
  Receipt Date: 20110906
  Transmission Date: 20111222
  Serious: Yes (Other)
  Sender: FDA-Public Use
  Company Number: US-SANOFI-AVENTIS-2011SA060114

PATIENT
  Age: 80 Year
  Sex: Female

DRUGS (2)
  1. SOLOSTAR [Suspect]
     Dates: start: 20110101
  2. LANTUS [Suspect]
     Dosage: DOSE:60 UNIT(S)
     Route: 058
     Dates: start: 20110101

REACTIONS (2)
  - VISUAL IMPAIRMENT [None]
  - MACULAR DEGENERATION [None]
